FAERS Safety Report 12436931 (Version 4)
Quarter: 2017Q2

REPORT INFORMATION
  Report Type: Report from Study
  Country: MX (occurrence: MX)
  Receive Date: 20160606
  Receipt Date: 20170425
  Transmission Date: 20170830
  Serious: Yes (Death, Other)
  Sender: FDA-Public Use
  Company Number: PHHY2016MX060310

PATIENT
  Age: 66 Year
  Sex: Female

DRUGS (27)
  1. TECNODRON [Concomitant]
     Indication: LIVER DISORDER
     Dosage: 5 YEARS AGO (ON SUNDAY, IN FASTING)
     Route: 065
  2. CARDISPAN//LEVOCARNITINE [Concomitant]
     Indication: LIVER DISORDER
     Dosage: 0.5 DF (0.5 SPOON), UNK
     Route: 065
  3. FERRANINA FOL [Concomitant]
     Indication: PRODUCT USED FOR UNKNOWN INDICATION
     Dosage: UNK
     Route: 065
  4. DIODOQUIN [Concomitant]
     Active Substance: IODOQUINOL
     Indication: PRODUCT USED FOR UNKNOWN INDICATION
     Route: 065
  5. TYLEX (PARACETAMOL) [Concomitant]
     Indication: PAIN
     Dosage: 2 DF, QD
     Route: 065
  6. URSOFALK [Concomitant]
     Active Substance: URSODIOL
     Indication: LIVER DISORDER
     Dosage: 3 DF, QD
     Route: 065
  7. CARNITINE [Concomitant]
     Active Substance: CARNITINE
     Indication: PRODUCT USED FOR UNKNOWN INDICATION
     Dosage: 1 DF, QD
     Route: 065
  8. LIBERTRIM//TRIMEBUTINE MALEATE [Concomitant]
     Indication: PRODUCT USED FOR UNKNOWN INDICATION
     Route: 065
  9. DIOVAN [Suspect]
     Active Substance: VALSARTAN
     Dosage: 1 DF (160 MG), QD
     Route: 065
  10. OMEPRAZOLE AND SODIUM BICARBONATE [Concomitant]
     Active Substance: OMEPRAZOLE\SODIUM BICARBONATE
     Indication: PRODUCT USED FOR UNKNOWN INDICATION
     Route: 065
  11. RESOTRANS [Concomitant]
     Indication: PRODUCT USED FOR UNKNOWN INDICATION
     Route: 065
  12. DIOVAN [Suspect]
     Active Substance: VALSARTAN
     Dosage: 1 DF, UNK (ONE MONTH AGO)
     Route: 065
  13. PEMIX [Concomitant]
     Indication: LIVER DISORDER
     Dosage: 100 OT, BID
     Route: 065
  14. CELL [Concomitant]
     Indication: PRODUCT USED FOR UNKNOWN INDICATION
     Route: 065
  15. TAFIL [Concomitant]
     Active Substance: ALPRAZOLAM
     Indication: SLEEP DISORDER
     Dosage: 1 DF, QD (AT NIGHT)
     Route: 065
  16. DIOVAN [Suspect]
     Active Substance: VALSARTAN
     Indication: PRODUCT USED FOR UNKNOWN INDICATION
     Dosage: 2 DF, QD
     Route: 065
  17. SILICON DIOXIDE [Concomitant]
     Active Substance: SILICON DIOXIDE
     Indication: PRODUCT USED FOR UNKNOWN INDICATION
     Route: 065
  18. TIAMINAL B12 [Concomitant]
     Indication: SUPPLEMENTATION THERAPY
     Dosage: 1 DF, QD
     Route: 065
  19. ERYTHROPOIETIN [Concomitant]
     Active Substance: ERYTHROPOIETIN
     Indication: PROPHYLAXIS
     Dosage: EVERY 5 DAYS
     Route: 065
  20. VARTALON COMPOSITUM [Concomitant]
     Indication: PRODUCT USED FOR UNKNOWN INDICATION
     Dosage: UNK, QD (1 PACKAGE)
     Route: 065
  21. CALCORT [Concomitant]
     Active Substance: DEFLAZACORT
     Indication: LIVER DISORDER
     Dosage: 2 DF, UNK
     Route: 065
  22. ZIENT [Concomitant]
     Active Substance: EZETIMIBE
     Indication: LIVER DISORDER
     Dosage: 1 DF, QD
     Route: 065
  23. ALLEGRA [Concomitant]
     Active Substance: FEXOFENADINE HYDROCHLORIDE
     Indication: PRURITUS
     Dosage: 0.5 DF, UNK
     Route: 065
  24. CALCITRIOL. [Concomitant]
     Active Substance: CALCITRIOL
     Indication: PRODUCT USED FOR UNKNOWN INDICATION
     Route: 065
  25. NATOLOX [Concomitant]
     Indication: LIVER DISORDER
     Dosage: 5 YEARS AGO (ON SUNDAY, IN FASTING)
     Route: 065
  26. ONOTON [Concomitant]
     Active Substance: BOS TAURUS BILE\DIMETHICONE\HEMICELLULASE\PANCRELIPASE
     Indication: PRODUCT USED FOR UNKNOWN INDICATION
     Route: 065
  27. LACTULAX [Concomitant]
     Indication: POLLAKIURIA
     Dosage: 4 DF (4 SPOONS), QD
     Route: 065

REACTIONS (9)
  - Death [Fatal]
  - Malaise [Unknown]
  - Typhoid fever [Not Recovered/Not Resolved]
  - Salmonellosis [Not Recovered/Not Resolved]
  - Arthropod bite [Recovered/Resolved]
  - Colitis [Unknown]
  - Nervous system disorder [Unknown]
  - Oral discomfort [Not Recovered/Not Resolved]
  - Abdominal discomfort [Not Recovered/Not Resolved]

NARRATIVE: CASE EVENT DATE: 20170421
